FAERS Safety Report 22317559 (Version 2)
Quarter: 2023Q2

REPORT INFORMATION
  Report Type: Report from Study
  Country: DZ (occurrence: DZ)
  Receive Date: 20230515
  Receipt Date: 20230521
  Transmission Date: 20230721
  Serious: Yes (Death)
  Sender: FDA-Public Use
  Company Number: DZ-BAYER-2023A066467

PATIENT
  Age: 38 Year
  Sex: Female

DRUGS (1)
  1. VENTAVIS [Suspect]
     Active Substance: ILOPROST
     Indication: Pulmonary arterial hypertension
     Dosage: 4 INHALATIONS A DAY
     Route: 055
     Dates: start: 20211104

REACTIONS (2)
  - Death [Fatal]
  - Off label use [Unknown]
